FAERS Safety Report 14695253 (Version 1)
Quarter: 2018Q1

REPORT INFORMATION
  Report Type: Spontaneous
  Country: AU (occurrence: AU)
  Receive Date: 20180329
  Receipt Date: 20180329
  Transmission Date: 20180509
  Serious: Yes (Other)
  Sender: FDA-Public Use
  Company Number: AU-INCYTE CORPORATION-2017IN011374

PATIENT

DRUGS (2)
  1. EVEROLIMUS. [Suspect]
     Active Substance: EVEROLIMUS
     Indication: GRAFT VERSUS HOST DISEASE IN LIVER
     Dosage: 1 MG, BID
     Route: 065
  2. JAKAVI [Suspect]
     Active Substance: RUXOLITINIB
     Indication: GRAFT VERSUS HOST DISEASE IN LIVER
     Dosage: 5 MG, BID
     Route: 065

REACTIONS (2)
  - Product use in unapproved indication [Unknown]
  - Graft versus host disease in liver [Unknown]
